FAERS Safety Report 22678573 (Version 3)
Quarter: 2024Q2

REPORT INFORMATION
  Report Type: Spontaneous
  Country: US (occurrence: US)
  Receive Date: 20230706
  Receipt Date: 20240507
  Transmission Date: 20240715
  Serious: Yes (Other)
  Sender: FDA-Public Use
  Company Number: US-PFIZER INC-PV202300116168

PATIENT
  Age: 53 Year
  Sex: Female

DRUGS (5)
  1. XELJANZ XR [Suspect]
     Active Substance: TOFACITINIB CITRATE
     Indication: Rheumatoid arthritis
     Dosage: 11 MG, 1X/DAY
     Route: 048
     Dates: start: 20230415, end: 202307
  2. XELJANZ XR [Suspect]
     Active Substance: TOFACITINIB CITRATE
     Dosage: 11 MG, 1X/DAY (RESTART ONCE OFF ANTIBIOTICS)
     Route: 048
     Dates: start: 20230415, end: 202307
  3. XELJANZ XR [Suspect]
     Active Substance: TOFACITINIB CITRATE
     Dosage: 11 MG, 1X/DAY
     Route: 048
     Dates: start: 202309
  4. XELJANZ XR [Suspect]
     Active Substance: TOFACITINIB CITRATE
     Dosage: 11 MG, 1X/DAY
     Route: 048
     Dates: start: 20230415
  5. PREDNISONE [Concomitant]
     Active Substance: PREDNISONE
     Dosage: PREDNISONE TAPER

REACTIONS (10)
  - Urinary tract infection [Unknown]
  - Drug ineffective [Unknown]
  - Malaise [Unknown]
  - Condition aggravated [Unknown]
  - Swelling [Unknown]
  - Migraine [Unknown]
  - Rash [Unknown]
  - Hypersensitivity [Unknown]
  - Discouragement [Unknown]
  - Depression [Unknown]

NARRATIVE: CASE EVENT DATE: 20230101
